FAERS Safety Report 6257354-3 (Version None)
Quarter: 2009Q3

REPORT INFORMATION
  Report Type: 
  Country: None (occurrence: None)
  Receive Date: 20090706
  Receipt Date: 20090625
  Transmission Date: 20100115
  Serious: Yes (Hospitalization, Other)
  Sender: FDA-Public Use
  Company Number: PHHO2009GB07010

PATIENT
  Sex: Male

DRUGS (7)
  1. TASIGNA [Suspect]
     Indication: CHRONIC MYELOID LEUKAEMIA
     Dosage: 400 MG, BID
     Route: 048
     Dates: start: 20090519
  2. TASIGNA [Suspect]
     Dosage: UNK
  3. TASIGNA [Suspect]
     Dosage: 400MG BID
     Route: 048
     Dates: end: 20090605
  4. STI571/CGP57148B T35717+CAPS [Suspect]
     Indication: CHRONIC MYELOID LEUKAEMIA
     Dosage: 400MG DAILY
     Route: 048
     Dates: start: 20080410, end: 20081006
  5. STI571/CGP57148B T35717+CAPS [Suspect]
     Dosage: 300MG DAILY
     Route: 048
     Dates: start: 20081007, end: 20090302
  6. STI571/CGP57148B T35717+CAPS [Suspect]
     Dosage: UNK
     Dates: start: 20090303, end: 20090420
  7. STI571/CGP57148B T35717+CAPS [Suspect]
     Dosage: 300MG
     Route: 048
     Dates: start: 20090421, end: 20090517

REACTIONS (11)
  - ANAEMIA [None]
  - ANAPHYLACTIC REACTION [None]
  - CHEST X-RAY ABNORMAL [None]
  - COUGH [None]
  - DYSPNOEA [None]
  - LEFT VENTRICULAR DYSFUNCTION [None]
  - LIP SWELLING [None]
  - MITRAL VALVE INCOMPETENCE [None]
  - PNEUMONIA [None]
  - PULMONARY OEDEMA [None]
  - SPEECH DISORDER [None]
